FAERS Safety Report 8413424-2 (Version None)
Quarter: 2012Q2

REPORT INFORMATION
  Report Type: 
  Country: None (occurrence: None)
  Receive Date: 20120605
  Receipt Date: 20120529
  Transmission Date: 20120825
  Serious: Yes (Other)
  Sender: FDA-Public Use
  Company Number: US-PFIZER INC-2011047340

PATIENT
  Sex: Female

DRUGS (1)
  1. LYRICA [Suspect]
     Indication: FIBROMYALGIA
     Dosage: 75 MG, 2X/DAY
     Route: 048
     Dates: start: 20100201

REACTIONS (11)
  - DIZZINESS [None]
  - PARAESTHESIA [None]
  - WITHDRAWAL SYNDROME [None]
  - FATIGUE [None]
  - NERVOUS SYSTEM DISORDER [None]
  - VISUAL ACUITY REDUCED [None]
  - BONE MARROW DISORDER [None]
  - PAIN [None]
  - TEMPERATURE INTOLERANCE [None]
  - IMPAIRED DRIVING ABILITY [None]
  - INSOMNIA [None]
